FAERS Safety Report 7384722-9 (Version None)
Quarter: 2011Q1

REPORT INFORMATION
  Report Type: 
  Country: None (occurrence: None)
  Receive Date: 20110330
  Receipt Date: 20110317
  Transmission Date: 20110831
  Serious: Yes (Other)
  Sender: FDA-Public Use
  Company Number: PHHY2010CA81739

PATIENT
  Sex: Female

DRUGS (1)
  1. ZOMETA [Suspect]
     Indication: BREAST CANCER
     Dosage: 4 MG, QW4
     Route: 042
     Dates: start: 20101118, end: 20110317

REACTIONS (7)
  - DEPRESSED MOOD [None]
  - BODY TEMPERATURE DECREASED [None]
  - TOOTHACHE [None]
  - FEELING ABNORMAL [None]
  - PAIN IN JAW [None]
  - GINGIVAL BLEEDING [None]
  - MASTICATION DISORDER [None]
